FAERS Safety Report 10432452 (Version 2)
Quarter: 2014Q3

REPORT INFORMATION
  Report Type: Report from Study
  Country: CA (occurrence: CA)
  Receive Date: 20140905
  Receipt Date: 20140910
  Transmission Date: 20150326
  Serious: Yes (Hospitalization)
  Sender: FDA-Public Use
  Company Number: CA-JNJFOC-20140901704

PATIENT
  Age: 75 Year
  Sex: Female
  Weight: 59.5 kg

DRUGS (1)
  1. REMICADE [Suspect]
     Active Substance: INFLIXIMAB
     Indication: ANKYLOSING SPONDYLITIS
     Route: 042
     Dates: start: 20070118, end: 20140827

REACTIONS (2)
  - Lung neoplasm malignant [Not Recovered/Not Resolved]
  - Calculus urinary [Unknown]

NARRATIVE: CASE EVENT DATE: 201407
